FAERS Safety Report 5473105-4 (Version None)
Quarter: 2007Q4

REPORT INFORMATION
  Report Type: 
  Country: None (occurrence: None)
  Receive Date: 20071001
  Receipt Date: 20070313
  Transmission Date: 20080405
  Serious: Yes (Other)
  Sender: FDA-Public Use
  Company Number: US-ASTRAZENECA-2007UW04852

PATIENT
  Age: 48 Year
  Sex: Female
  Weight: 59 kg

DRUGS (8)
  1. ARIMIDEX [Suspect]
     Indication: BREAST CANCER FEMALE
     Route: 048
     Dates: start: 20050101
  2. EFFEXOR XR [Concomitant]
  3. VYTORIN [Concomitant]
  4. MIRAPEX [Concomitant]
  5. LYRICA [Concomitant]
  6. CYCLOBENZAPRINE HCL [Concomitant]
  7. OXYCODONE HCL [Concomitant]
  8. CADIENT [Concomitant]

REACTIONS (4)
  - ARTHRITIS [None]
  - CARPAL TUNNEL SYNDROME [None]
  - DRY MOUTH [None]
  - NODULE ON EXTREMITY [None]
